FAERS Safety Report 5372398-1 (Version None)
Quarter: 2007Q2

REPORT INFORMATION
  Report Type: 
  Country: None (occurrence: None)
  Receive Date: 20070627
  Receipt Date: 20070501
  Transmission Date: 20071010
  Serious: No
  Sender: FDA-Public Use
  Company Number: US-BRISTOL-MYERS SQUIBB COMPANY-13766027

PATIENT
  Age: 70 Year
  Sex: Male

DRUGS (6)
  1. SPRYCEL [Suspect]
     Indication: NON-HODGKIN'S LYMPHOMA
     Route: 048
     Dates: start: 20061120, end: 20070401
  2. HYDROCHLOROTHIAZIDE [Concomitant]
  3. LANOXIN [Concomitant]
  4. DILTIAZEM HCL [Concomitant]
  5. ALLOPURINOL [Concomitant]
  6. DETROL [Concomitant]

REACTIONS (1)
  - PLEURAL EFFUSION [None]
